FAERS Safety Report 8922031 (Version 1)
Quarter: 2012Q4

REPORT INFORMATION
  Report Type: 
  Country: US (occurrence: US)
  Receive Date: 20121126
  Receipt Date: 20121126
  Transmission Date: 20130627
  Serious: Yes (Hospitalization, Other)
  Sender: FDA-Public Use
  Company Number: US-BAYER-2012-120465

PATIENT
  Age: 42 Year
  Sex: Female

DRUGS (3)
  1. BETASERON [Suspect]
     Indication: RELAPSING-REMITTING MULTIPLE SCLEROSIS
     Dosage: UNK
     Route: 058
     Dates: start: 20120218, end: 20120607
  2. BETASERON [Suspect]
     Indication: RELAPSING-REMITTING MULTIPLE SCLEROSIS
     Dosage: 8 miu, UNK
     Route: 058
     Dates: start: 20120618
  3. BETA BLOCKING AGENTS [Concomitant]
     Indication: MITRAL REGURGITATION
     Dosage: UNK
     Dates: start: 201211

REACTIONS (6)
  - Hypertension [Not Recovered/Not Resolved]
  - Adrenal insufficiency [Not Recovered/Not Resolved]
  - Weight decreased [Not Recovered/Not Resolved]
  - Dysphagia [Recovering/Resolving]
  - Confusional state [Recovering/Resolving]
  - Fungal infection [Recovering/Resolving]
